FAERS Safety Report 6119770 (Version 16)
Quarter: 2013Q2

REPORT INFORMATION
  Report Type: Spontaneous
  Country: US (occurrence: US)
  Receive Date: 20060831
  Receipt Date: 20130508
  Transmission Date: 20140414
  Serious: Yes (Hospitalization, Other)
  Sender: FDA-Public Use
  Company Number: PHEH2006US10883

PATIENT
  Age: 50 Year
  Sex: Male

DRUGS (28)
  1. ZOMETA [Suspect]
     Dosage: 4 MG, UNK
     Dates: start: 2002
  2. AREDIA [Suspect]
     Indication: BONE DISORDER
     Dosage: 90 MG, UNK
     Route: 042
     Dates: start: 1999, end: 2002
  3. THALIDOMIDE [Concomitant]
  4. NORVASC [Concomitant]
     Dosage: 10 MG, UNK
  5. HYDROCODONE W/PARACETAMOL [Concomitant]
  6. CEPHALEXIN [Concomitant]
     Dosage: 500 MG, UNK
  7. PARACETAMOL W/TRAMADOL [Concomitant]
  8. LORTAB [Concomitant]
     Dosage: 5/500, UKN, UNK
  9. HYDROCHLOROTHIAZIDE [Concomitant]
  10. BUTALBITAL, ACETAMINOPHEN + CAFFEINE [Concomitant]
  11. AMOXICILLIN + CLAVULANIC ACID [Concomitant]
  12. CIPROFLOXACIN [Concomitant]
  13. POTASSIUM CHLORIDE [Concomitant]
  14. ZOLPIDEM [Concomitant]
  15. AMLODIPINE [Concomitant]
  16. MS CONTIN [Concomitant]
  17. ANUSOL PLUS [Concomitant]
     Indication: HAEMORRHOIDS
  18. DURAGESIC [Concomitant]
  19. AMPICILLIN [Concomitant]
  20. LEVAQUIN [Concomitant]
  21. DOCUSATE [Concomitant]
  22. MARINOL [Concomitant]
  23. TEMSIROLIMUS [Concomitant]
  24. AMBIEN [Concomitant]
  25. SENNA [Concomitant]
  26. METHADONE [Concomitant]
  27. ASPIRIN ^BAYER^ [Concomitant]
  28. TORADOL [Concomitant]

REACTIONS (57)
  - Sepsis [Unknown]
  - Respiratory tract infection [Unknown]
  - Osteonecrosis of jaw [Unknown]
  - Injury [Unknown]
  - Pain [Unknown]
  - Anxiety [Unknown]
  - Osteitis [Unknown]
  - Swelling [Unknown]
  - Metastases to central nervous system [Unknown]
  - Oral neoplasm [Unknown]
  - Oral infection [Unknown]
  - Purulent discharge [Unknown]
  - Dyspnoea [Unknown]
  - Pleural effusion [Unknown]
  - Lymphadenopathy mediastinal [Unknown]
  - Metastases to lung [Unknown]
  - Exostosis [Unknown]
  - Atelectasis [Unknown]
  - Pathological fracture [Unknown]
  - Pneumonia [Unknown]
  - Pyrexia [Unknown]
  - Anaemia [Unknown]
  - Respiratory failure [Unknown]
  - Lymphadenopathy [Unknown]
  - Haemoptysis [Unknown]
  - Decreased activity [Unknown]
  - Metastases to bone [Unknown]
  - Constipation [Unknown]
  - Fatigue [Unknown]
  - Fluid retention [Unknown]
  - Haemorrhoids [Unknown]
  - Rectal haemorrhage [Unknown]
  - Oedema [Unknown]
  - Chest pain [Unknown]
  - Abdominal pain [Unknown]
  - Hypertriglyceridaemia [Unknown]
  - Renal failure chronic [Unknown]
  - Sinus bradycardia [Unknown]
  - Pain in extremity [Unknown]
  - Arthralgia [Unknown]
  - Osteoarthritis [Unknown]
  - Joint dislocation [Unknown]
  - Pain in jaw [Unknown]
  - Metastases to skin [Unknown]
  - Palmar-plantar erythrodysaesthesia syndrome [Unknown]
  - Inguinal mass [Unknown]
  - Neuroma [Unknown]
  - Prostatomegaly [Unknown]
  - Pleural fibrosis [Unknown]
  - Renal cyst [Unknown]
  - Tumour ulceration [Unknown]
  - Neoplasm progression [Unknown]
  - Tumour haemorrhage [Unknown]
  - Osteonecrosis [Unknown]
  - Neoplasm malignant [Unknown]
  - Rhinorrhoea [Unknown]
  - Rhinitis [Unknown]
